FAERS Safety Report 9191133 (Version 1)
Quarter: 2013Q1

REPORT INFORMATION
  Report Type: Spontaneous
  Country: US (occurrence: US)
  Receive Date: 20130326
  Receipt Date: 20130326
  Transmission Date: 20140127
  Serious: Yes (Other)
  Sender: FDA-Public Use
  Company Number: US-BAYER-2013-037043

PATIENT
  Age: 59 Year
  Sex: Female

DRUGS (4)
  1. ANTIHEMOPHILIC FACTOR VIII (RECOMBINANT), SUCROSE FORMULATED [Suspect]
     Indication: PROCEDURAL HAEMORRHAGE
  2. PACKED RED BLOOD CELLS [Concomitant]
     Dosage: 8 U, UNK
  3. PLASMA, FRESH FROZEN [Concomitant]
     Dosage: 6 U, UNK
  4. PLATELETS, HUMAN BLOOD [Concomitant]
     Dosage: 6 U, UNK

REACTIONS (1)
  - Drug ineffective [Recovered/Resolved]
